FAERS Safety Report 25093624 (Version 1)
Quarter: 2025Q1

REPORT INFORMATION
  Report Type: Spontaneous
  Country: US (occurrence: US)
  Receive Date: 20250319
  Receipt Date: 20250319
  Transmission Date: 20250409
  Serious: Yes (Hospitalization, Other)
  Sender: GILEAD
  Company Number: US-GILEAD-2025-0707144

PATIENT
  Age: 43 Year
  Sex: Male

DRUGS (9)
  1. BIKTARVY [Suspect]
     Active Substance: BICTEGRAVIR SODIUM\EMTRICITABINE\TENOFOVIR ALAFENAMIDE FUMARATE
     Indication: HIV infection
     Route: 065
  2. NICARDIPINE [Concomitant]
     Active Substance: NICARDIPINE
  3. ISOSORBIDE [Concomitant]
     Active Substance: ISOSORBIDE
  4. HYDRALAZINE [Concomitant]
     Active Substance: HYDRALAZINE HYDROCHLORIDE
  5. LOSARTAN [Concomitant]
     Active Substance: LOSARTAN
  6. DOXAZOSIN [Concomitant]
     Active Substance: DOXAZOSIN MESYLATE
  7. NIFEDIPINE [Concomitant]
     Active Substance: NIFEDIPINE
  8. CARVEDILOL [Concomitant]
     Active Substance: CARVEDILOL
  9. ISOSORBIDE DINITRATE [Concomitant]
     Active Substance: ISOSORBIDE DINITRATE

REACTIONS (4)
  - Cardiac failure congestive [Unknown]
  - Chest pain [Unknown]
  - Dyspnoea [Unknown]
  - Hypertensive crisis [Recovering/Resolving]
